FAERS Safety Report 8403154-5 (Version None)
Quarter: 2012Q2

REPORT INFORMATION
  Report Type: 
  Country: None (occurrence: None)
  Receive Date: 20120601
  Receipt Date: 20120524
  Transmission Date: 20120825
  Serious: Yes (Hospitalization)
  Sender: FDA-Public Use
  Company Number: US-ELI_LILLY_AND_COMPANY-US201205009734

PATIENT
  Age: 62 Year
  Sex: Female

DRUGS (1)
  1. EFFIENT [Suspect]
     Indication: STENT PLACEMENT
     Dosage: UNK
     Dates: start: 20110101, end: 20120524

REACTIONS (5)
  - DUODENAL ULCER HAEMORRHAGE [None]
  - OESOPHAGEAL RUPTURE [None]
  - VOMITING [None]
  - INFLUENZA [None]
  - ABDOMINAL PAIN UPPER [None]
